FAERS Safety Report 20727655 (Version 1)
Quarter: 2022Q2

REPORT INFORMATION
  Report Type: Spontaneous
  Country: US (occurrence: None)
  Receive Date: 20220419
  Receipt Date: 20220419
  Transmission Date: 20220721
  Serious: No
  Sender: FDA-Public Use
  Company Number: US-ROCHE-2905504

PATIENT
  Sex: Female
  Weight: 84.444 kg

DRUGS (1)
  1. AVASTIN [Suspect]
     Active Substance: BEVACIZUMAB
     Indication: Colon cancer
     Dosage: YES
     Route: 065
     Dates: start: 20200928

REACTIONS (4)
  - Pruritus [Recovered/Resolved]
  - Chills [Recovered/Resolved]
  - Diarrhoea [Unknown]
  - Tremor [Unknown]
